FAERS Safety Report 5546108-9 (Version None)
Quarter: 2007Q4

REPORT INFORMATION
  Report Type: 
  Country: None (occurrence: None)
  Receive Date: 20071211
  Receipt Date: 20071017
  Transmission Date: 20080405
  Serious: No
  Sender: FDA-Public Use
  Company Number: US-BRISTOL-MYERS SQUIBB COMPANY-13945894

PATIENT
  Sex: Female

DRUGS (4)
  1. EMSAM [Suspect]
     Route: 062
     Dates: start: 20061101
  2. XANAX [Concomitant]
  3. LEVOXYL [Concomitant]
  4. COZAAR [Concomitant]

REACTIONS (2)
  - APPLICATION SITE REACTION [None]
  - OEDEMA PERIPHERAL [None]
